FAERS Safety Report 6276123-1 (Version None)
Quarter: 2009Q3

REPORT INFORMATION
  Report Type: 
  Country: None (occurrence: None)
  Receive Date: 20090717
  Receipt Date: 20090717
  Transmission Date: 20100115
  Serious: No
  Sender: FDA-Public Use
  Company Number: None

PATIENT
  Sex: Female
  Weight: 54.4316 kg

DRUGS (1)
  1. FENTANYL-100 [Suspect]
     Dosage: 100 MG 3 DAYS PACH

REACTIONS (2)
  - CONFUSIONAL STATE [None]
  - MOOD ALTERED [None]
